FAERS Safety Report 16539115 (Version 1)
Quarter: 2019Q3

REPORT INFORMATION
  Report Type: Spontaneous
  Country: FR (occurrence: FR)
  Receive Date: 20190708
  Receipt Date: 20190708
  Transmission Date: 20191004
  Serious: Yes (Other)
  Sender: FDA-Public Use
  Company Number: FR-AKORN PHARMACEUTICALS-2019AKN01404

PATIENT
  Age: 17 Year
  Sex: Female

DRUGS (2)
  1. ISOTRETINOIN. [Suspect]
     Active Substance: ISOTRETINOIN
     Dosage: CUMULATIVE DOSE OF 5 G
     Route: 048
  2. ISOTRETINOIN. [Suspect]
     Active Substance: ISOTRETINOIN
     Dosage: 3.6 G CUMULATIVE DOSE OF ISOTRETINOIN FOR 50 KG
     Route: 048

REACTIONS (6)
  - Vitamin B12 deficiency [Recovered/Resolved]
  - Anaemia macrocytic [Recovered/Resolved]
  - Blood lactate dehydrogenase increased [Recovered/Resolved]
  - Folate deficiency [Recovered/Resolved]
  - Aphthous ulcer [Recovered/Resolved]
  - Transaminases increased [Recovered/Resolved]
